FAERS Safety Report 6209867-8 (Version None)
Quarter: 2009Q2

REPORT INFORMATION
  Report Type: 
  Country: None (occurrence: None)
  Receive Date: 20090601
  Receipt Date: 20090527
  Transmission Date: 20091009
  Serious: Yes (Death, Hospitalization, Other)
  Sender: FDA-Public Use
  Company Number: DE-BRISTOL-MYERS SQUIBB COMPANY-14172589

PATIENT
  Age: 70 Year
  Sex: Male
  Weight: 95 kg

DRUGS (12)
  1. BLINDED: IPILIMUMAB [Suspect]
     Indication: MALIGNANT MELANOMA
     Dosage: STARTED ON 22-FEB-08
     Route: 042
     Dates: start: 20080409, end: 20080409
  2. BLINDED: GP100 [Suspect]
     Indication: MALIGNANT MELANOMA
     Route: 058
     Dates: start: 20080409, end: 20080409
  3. BLINDED: PLACEBO [Suspect]
     Indication: MALIGNANT MELANOMA
     Dosage: STARTED ON 27-FEB-08
     Route: 058
     Dates: start: 20080409, end: 20080409
  4. RAMIPRIL [Concomitant]
     Indication: HYPERTENSION
     Route: 048
     Dates: start: 19880101
  5. DICLOFENAC SODIUM [Concomitant]
     Indication: BACK PAIN
     Route: 048
     Dates: start: 19880101
  6. GENTAMICIN [Concomitant]
     Indication: CONJUNCTIVITIS
     Dates: start: 20080409, end: 20080416
  7. METAMIZOL [Concomitant]
     Indication: BACK PAIN
     Dosage: 1 DOSAGE FORM=4X200 (UNITS NOT SPECIFIED)
     Route: 048
     Dates: start: 20080227
  8. DEXAMETHASONE 4MG TAB [Concomitant]
     Indication: DIARRHOEA
     Route: 048
     Dates: start: 20080430, end: 20080430
  9. IMODIUM [Concomitant]
     Indication: DIARRHOEA
     Route: 048
     Dates: start: 20080416, end: 20080430
  10. LASIX [Concomitant]
     Indication: ABDOMINAL PAIN
     Route: 048
     Dates: start: 20080430, end: 20080430
  11. NOVALGIN [Concomitant]
     Indication: ABDOMINAL PAIN
     Route: 042
     Dates: start: 20080430, end: 20080430
  12. BUSCOPAN [Concomitant]
     Indication: ABDOMINAL PAIN
     Route: 042
     Dates: start: 20080430, end: 20080430

REACTIONS (4)
  - DIARRHOEA [None]
  - INTESTINAL PERFORATION [None]
  - MULTI-ORGAN FAILURE [None]
  - PERITONITIS [None]
